FAERS Safety Report 4701744-4 (Version None)
Quarter: 2005Q2

REPORT INFORMATION
  Report Type: 
  Country: None (occurrence: None)
  Receive Date: 20050627
  Receipt Date: 20050620
  Transmission Date: 20051028
  Serious: Yes (Death, Hospitalization)
  Sender: FDA-Public Use
  Company Number: HQWYE097314AUG03

PATIENT
  Age: 60 Year
  Sex: Female

DRUGS (1)
  1. PREMPRO [Suspect]
     Indication: HORMONE REPLACEMENT THERAPY
     Dosage: DAILY, ORAL
     Route: 048
     Dates: start: 19970101

REACTIONS (16)
  - ANAEMIA [None]
  - BREAST CANCER METASTATIC [None]
  - CARDIAC FAILURE CONGESTIVE [None]
  - CONCOMITANT DISEASE PROGRESSION [None]
  - DISSEMINATED INTRAVASCULAR COAGULATION [None]
  - DRUG EFFECT DECREASED [None]
  - FEBRILE NEUTROPENIA [None]
  - GALLBLADDER DISORDER [None]
  - INFLAMMATORY CARCINOMA OF BREAST STAGE IV [None]
  - LABORATORY TEST ABNORMAL [None]
  - METASTASES TO BONE [None]
  - METASTASES TO LIVER [None]
  - OESTROGEN RECEPTOR ASSAY POSITIVE [None]
  - STOMATITIS [None]
  - THROMBOCYTOPENIA [None]
  - WEIGHT DECREASED [None]
